FAERS Safety Report 4771564-3 (Version None)
Quarter: 2005Q3

REPORT INFORMATION
  Report Type: 
  Country: None (occurrence: None)
  Receive Date: 20050914
  Receipt Date: 20050914
  Transmission Date: 20060218
  Serious: Yes (Life-Threatening, Hospitalization, Other)
  Sender: FDA-Public Use
  Company Number: None

PATIENT
  Sex: Female
  Weight: 122.4712 kg

DRUGS (5)
  1. VERELAN PM [Suspect]
     Indication: HYPERTENSION
     Dosage: 3000 MG; 1 CAPSULE @ BEDTIME
     Dates: start: 20050401, end: 20050801
  2. ACTOS [Concomitant]
  3. DIOVAN HCT [Concomitant]
  4. METAFORMIN HCL [Concomitant]
  5. SPIRONOLACT/HCTZ [Concomitant]

REACTIONS (5)
  - ABASIA [None]
  - FATIGUE [None]
  - MOBILITY DECREASED [None]
  - MUSCLE SPASMS [None]
  - PAIN [None]
